FAERS Safety Report 20205129 (Version 1)
Quarter: 2021Q4

REPORT INFORMATION
  Report Type: Spontaneous
  Country: US (occurrence: None)
  Receive Date: 20211220
  Receipt Date: 20211220
  Transmission Date: 20220303
  Serious: No
  Sender: FDA-Public Use
  Company Number: US-MDD US Operations-SUP202107-001513

PATIENT

DRUGS (3)
  1. OXTELLAR XR [Suspect]
     Active Substance: OXCARBAZEPINE
     Indication: Product used for unknown indication
  2. OXTELLAR XR [Suspect]
     Active Substance: OXCARBAZEPINE
  3. OXTELLAR XR [Suspect]
     Active Substance: OXCARBAZEPINE

REACTIONS (4)
  - Skin disorder [Unknown]
  - Vomiting [Unknown]
  - Nausea [Unknown]
  - Headache [Unknown]
